FAERS Safety Report 7921729-4 (Version None)
Quarter: 2011Q4

REPORT INFORMATION
  Report Type: 
  Country: None (occurrence: None)
  Receive Date: 20111117
  Receipt Date: 20111110
  Transmission Date: 20120403
  Serious: Yes (Other)
  Sender: FDA-Public Use
  Company Number: US-GLAXOSMITHKLINE-A0952635A

PATIENT
  Age: 8 Year
  Sex: Male

DRUGS (3)
  1. LAMICTAL [Suspect]
     Indication: CONVULSION
     Dosage: 200MG PER DAY
     Route: 048
     Dates: start: 20111001
  2. LAMICTAL [Suspect]
     Indication: GRAND MAL CONVULSION
     Dosage: 300MG PER DAY
     Route: 048
     Dates: start: 20100701, end: 20111001
  3. ETHOSUXIMIDE [Suspect]
     Route: 065
     Dates: start: 20111001

REACTIONS (4)
  - PETIT MAL EPILEPSY [None]
  - GRAND MAL CONVULSION [None]
  - LOGORRHOEA [None]
  - PSYCHOMOTOR HYPERACTIVITY [None]
